FAERS Safety Report 23375939 (Version 2)
Quarter: 2024Q1

REPORT INFORMATION
  Report Type: Spontaneous
  Country: US (occurrence: US)
  Receive Date: 20240108
  Receipt Date: 20240221
  Transmission Date: 20240410
  Serious: Yes (Hospitalization, Other)
  Sender: FDA-Public Use
  Company Number: US-ALEMBIC PHARMACUETICALS LIMITED-2023SCAL001296

PATIENT

DRUGS (3)
  1. BUPROPION HYDROCHLORIDE [Suspect]
     Active Substance: BUPROPION HYDROCHLORIDE
     Indication: Depression
     Dosage: UNK
     Route: 065
  2. ALPRAZOLAM [Suspect]
     Active Substance: ALPRAZOLAM
     Indication: Product used for unknown indication
     Dosage: UNK
     Route: 065
  3. LISDEXAMFETAMINE [Suspect]
     Active Substance: LISDEXAMFETAMINE
     Indication: Product used for unknown indication
     Dosage: UNK
     Route: 065

REACTIONS (12)
  - Toxicity to various agents [Recovering/Resolving]
  - Cardiogenic shock [Recovered/Resolved]
  - Status epilepticus [Recovered/Resolved]
  - Electrocardiogram QT prolonged [Recovering/Resolving]
  - Anisocoria [Recovering/Resolving]
  - Ejection fraction decreased [Recovering/Resolving]
  - Cardiotoxicity [Recovering/Resolving]
  - Unresponsive to stimuli [Recovering/Resolving]
  - Ventricular tachycardia [Recovering/Resolving]
  - Mental status changes [Recovering/Resolving]
  - Hypotension [Recovering/Resolving]
  - Overdose [Unknown]
